FAERS Safety Report 5308589-5 (Version None)
Quarter: 2007Q2

REPORT INFORMATION
  Report Type: 
  Country: None (occurrence: None)
  Receive Date: 20070426
  Receipt Date: 20070419
  Transmission Date: 20071010
  Serious: Yes (Hospitalization)
  Sender: FDA-Public Use
  Company Number: HQWYE664419APR07

PATIENT
  Age: 31 Year
  Sex: Female

DRUGS (3)
  1. TRIQUILAR-21 [Suspect]
     Indication: CONTRACEPTION
     Dosage: UNKNOWN
     Route: 048
     Dates: end: 20070414
  2. TRIQUILAR-21 [Suspect]
     Indication: POLYCYSTIC OVARIES
  3. TRIQUILAR-21 [Suspect]
     Indication: DYSMENORRHOEA

REACTIONS (2)
  - CEREBRAL THROMBOSIS [None]
  - HYPOAESTHESIA [None]
